FAERS Safety Report 8721851 (Version 4)
Quarter: 2012Q4

REPORT INFORMATION
  Report Type: 
  Country: US (occurrence: US)
  Receive Date: 20120814
  Receipt Date: 20120925
  Transmission Date: 20130627
  Serious: No
  Sender: FDA-Public Use
  Company Number: US-PFIZER INC-2012193421

PATIENT
  Age: 51 Year
  Sex: Female
  Weight: 50.34 kg

DRUGS (20)
  1. NEURONTIN [Suspect]
     Indication: AFFECTIVE DISORDER
     Dosage: 400 mg, daily
     Route: 048
  2. NEURONTIN [Suspect]
     Indication: FIBROMYALGIA
     Dosage: UNK
     Route: 048
  3. NEURONTIN [Suspect]
     Indication: BIPOLAR DISORDER
     Dosage: 300 mg, UNK
     Route: 048
  4. NEURONTIN [Suspect]
     Indication: MYALGIA
  5. GABAPENTIN [Suspect]
     Indication: MYALGIA
     Dosage: 800mg in the morning and 2x800mg tablets in the evening
     Route: 048
  6. GABAPENTIN [Suspect]
     Indication: AFFECTIVE DISORDER
     Dosage: 1200 mg, UNK
     Route: 048
  7. GABAPENTIN [Suspect]
     Indication: FIBROMYALGIA
  8. GABAPENTIN [Suspect]
     Indication: BIPOLAR DISORDER
  9. LYRICA [Suspect]
     Indication: MYALGIA
     Dosage: 75 mg, UNK
  10. LYRICA [Suspect]
     Dosage: UNK, every three days
  11. LISINOPRIL W/HYDROCHLOROTHIAZIDE [Concomitant]
     Indication: HYPERTENSION
     Dosage: 12.5/20 mg, daily
  12. LISINOPRIL W/HYDROCHLOROTHIAZIDE [Concomitant]
     Dosage: 20/12 mg, daily
  13. VYTORIN [Concomitant]
     Indication: BLOOD CHOLESTEROL INCREASED
     Dosage: 10/20 mg,daily
  14. LEXAPRO [Concomitant]
     Indication: DEPRESSION
     Dosage: 5 mg,daily
  15. TRAZODONE [Concomitant]
     Indication: SLEEP DISORDER
     Dosage: 150 mg, daily
  16. TRAZODONE [Concomitant]
     Dosage: quarter of tablet daily at night
  17. MOBIC [Concomitant]
     Dosage: 725 mg, daily
  18. SYMBICORT [Concomitant]
     Dosage: 160/4.5 ug, 2 puff daily
  19. PREMARIN [Concomitant]
     Dosage: 125 mg, daily
  20. PROTONIX [Concomitant]
     Dosage: 40 mg, daily

REACTIONS (8)
  - Drug administration error [Unknown]
  - Off label use [Unknown]
  - Headache [Unknown]
  - Withdrawal syndrome [Unknown]
  - Hyperhidrosis [Unknown]
  - Nasopharyngitis [Unknown]
  - Tremor [Unknown]
  - Hot flush [Unknown]
